FAERS Safety Report 7633757-7 (Version None)
Quarter: 2011Q3

REPORT INFORMATION
  Report Type: 
  Country: None (occurrence: None)
  Receive Date: 20110725
  Receipt Date: 20101214
  Transmission Date: 20111222
  Serious: Yes (Hospitalization)
  Sender: FDA-Public Use
  Company Number: US-BAYER-US-2007-022524

PATIENT
  Age: 51 Year
  Sex: Female
  Weight: 68.027 kg

DRUGS (7)
  1. FELODIPINE [Concomitant]
     Dosage: DAILY DOSE 5 MG
  2. MICARDIS HCT [Concomitant]
     Dosage: 1 TAB(S), 1X/DAY [DAILY DOSE: 1 TAB(S)]
  3. MONTELUKAST SODIUM [Concomitant]
     Dosage: DAILY DOSE 10 MG
  4. BETASERON [Suspect]
     Dosage: 8 MIU, QOD
     Dates: start: 20070401
  5. CALCIUM W/VITAMIN D NOS [Concomitant]
     Dosage: 1 TAB(S), 2X/DAY [DAILY DOSE: 2 TAB(S)]
  6. BETASERON [Suspect]
     Indication: RELAPSING-REMITTING MULTIPLE SCLEROSIS
     Dosage: 8 MIU, EVERY 2D
     Route: 058
     Dates: start: 20030314, end: 20070122
  7. FEXOFENADINE [Concomitant]
     Dosage: DAILY DOSE 180 MG

REACTIONS (5)
  - BURNING SENSATION [None]
  - ANAEMIA [None]
  - PYREXIA [None]
  - NEOPLASM [None]
  - NIGHT SWEATS [None]
